FAERS Safety Report 16368070 (Version 1)
Quarter: 2019Q2

REPORT INFORMATION
  Report Type: Report from Study
  Country: US (occurrence: US)
  Receive Date: 20190529
  Receipt Date: 20190529
  Transmission Date: 20190711
  Serious: Yes (Other)
  Sender: FDA-Public Use
  Company Number: US-MALLINCKRODT-T201903792

PATIENT
  Sex: Female

DRUGS (1)
  1. REPOSITORY CORTICOTROPIN INJECTION [Suspect]
     Active Substance: CORTICOTROPIN
     Indication: SARCOIDOSIS
     Dosage: 80 UNITS / 1 ML, EVERY 3 DAYS / EVERY 72 HOURS
     Route: 058
     Dates: start: 20161014

REACTIONS (6)
  - Sarcoidosis [Unknown]
  - Impaired gastric emptying [Recovering/Resolving]
  - Sleep disorder [Recovering/Resolving]
  - Condition aggravated [Unknown]
  - Malaise [Recovering/Resolving]
  - Diabetes mellitus [Unknown]
